FAERS Safety Report 7490778-5 (Version None)
Quarter: 2011Q2

REPORT INFORMATION
  Report Type: 
  Country: None (occurrence: None)
  Receive Date: 20110519
  Receipt Date: 20110509
  Transmission Date: 20111010
  Serious: Yes (Other)
  Sender: FDA-Public Use
  Company Number: US-BAYER-200929824NA

PATIENT
  Age: 70 Year
  Sex: Male
  Weight: 89.841 kg

DRUGS (50)
  1. PLAVIX [Concomitant]
     Dosage: UNK
     Dates: start: 20010901, end: 20080301
  2. FELODIPINE [Concomitant]
     Dosage: UNK
     Dates: start: 20050101, end: 20080101
  3. PROTAMINE SULFATE [Concomitant]
     Dosage: 330 MG, UNK
  4. VERSED [Concomitant]
  5. PROPOFOL [Concomitant]
  6. PROTONIX [Concomitant]
  7. HYDROCHLOROTHIAZIDE [Concomitant]
     Dosage: UNK
     Dates: start: 19990101, end: 20070901
  8. ACETYLSALICYLIC ACID SRT [Concomitant]
     Dosage: UNK
     Dates: start: 19990101, end: 20070301
  9. LORATADINE [Concomitant]
     Dosage: UNK
     Dates: start: 20050408
  10. LIDOCAINE [Concomitant]
     Dosage: 100 MG, UNK
  11. NATRIUM BICARBONICUM [Concomitant]
     Dosage: 5
  12. CALCIUM CHLORATUM [Concomitant]
     Dosage: 1 G, UNK
  13. ANTIBIOTICS [Concomitant]
     Indication: PURULENT DISCHARGE
  14. VARDENAFIL HYDROCHLORIDE (LEVITRA) [Concomitant]
     Dosage: UNK
     Dates: start: 20060201, end: 20070301
  15. IPRATROPIUM BROMIDE [Concomitant]
     Dosage: UNK
     Dates: start: 20000101
  16. INSULIN 2 [Concomitant]
     Dosage: 70 U, UNK
  17. FENTANYL [Concomitant]
  18. NIACIN [Concomitant]
     Dosage: UNK
     Dates: start: 20060101, end: 20080101
  19. FEXOFENADINE [Concomitant]
     Dosage: UNK
     Dates: start: 20000101
  20. MUCOMYST [Concomitant]
  21. BACTROBAN [Concomitant]
     Dosage: NASAL SWAB
  22. MAGNESIUM SULFATE [Concomitant]
     Dosage: 1 G, UNK
  23. SIMVASTATIN [Concomitant]
     Dosage: UNK
     Dates: start: 19950101, end: 20050101
  24. LOPRESSOR [Concomitant]
  25. LOVENOX [Concomitant]
  26. INSULIN 2 [Concomitant]
     Dosage: 70 U, UNK
  27. NEO SYNEPHRIN [Concomitant]
     Dosage: 40
  28. LOVASTATIN [Concomitant]
     Dosage: UNK
     Dates: start: 20030101, end: 20080101
  29. CONTRAST MEDIA [Concomitant]
     Indication: CATHETERISATION CARDIAC
     Dosage: UNK
     Dates: start: 20070831
  30. TRASYLOL [Suspect]
     Dosage: 25ML/HOUR
     Dates: start: 20070904, end: 20070904
  31. TRIAMTERENE AND HYDROCHLOROTHIAZIDE [Concomitant]
     Dosage: UNK
     Dates: start: 20050101
  32. PAPAVERIN [Concomitant]
     Dosage: 120 MG, UNK
  33. HEPARIN [Concomitant]
     Dosage: 10000 U, UNK
  34. BETA BLOCKING AGENTS [Concomitant]
     Indication: ATRIAL FIBRILLATION
  35. DILTIAZEM [Concomitant]
     Dosage: UNK
     Dates: start: 20000101, end: 20040801
  36. EPINEPHRINE [Concomitant]
  37. PHENYLEPHRIN [Concomitant]
  38. HYTRIN [Concomitant]
  39. NATRIUM BICARBONICUM [Concomitant]
     Dosage: 5
  40. TRASYLOL [Suspect]
     Dosage: 100ML LOADING DOSE
     Dates: start: 20070904, end: 20070904
  41. TERAZOSIN HCL [Concomitant]
     Dosage: UNK
     Dates: start: 19990101, end: 20080701
  42. FLUVASTATIN [Concomitant]
     Dosage: UNK
     Dates: start: 20050919, end: 20060920
  43. HEPARIN [Concomitant]
     Dosage: 15000 U, UNK
  44. FLUNISOLIDE [Concomitant]
     Dosage: 0.025% 2 SPAYS IN BOTH NOSTRELS
     Dates: start: 20060221, end: 20070222
  45. NORVASC [Concomitant]
  46. NITROGLYCERIN [Concomitant]
  47. AMIODARONE HCL [Concomitant]
     Indication: ATRIAL FIBRILLATION
     Route: 042
  48. TRASYLOL [Suspect]
     Indication: CORONARY ARTERY BYPASS
     Dosage: 1 ML, INITIAL DOSE
     Route: 042
     Dates: start: 20070904, end: 20070904
  49. DOBUTREX [Concomitant]
  50. MANNITOL [Concomitant]

REACTIONS (12)
  - STRESS [None]
  - FEAR [None]
  - MULTI-ORGAN FAILURE [None]
  - EMOTIONAL DISTRESS [None]
  - UNEVALUABLE EVENT [None]
  - RENAL FAILURE [None]
  - INJURY [None]
  - RENAL INJURY [None]
  - RENAL IMPAIRMENT [None]
  - ANXIETY [None]
  - PAIN [None]
  - ANHEDONIA [None]
